FAERS Safety Report 25571497 (Version 2)
Quarter: 2025Q3

REPORT INFORMATION
  Report Type: Report from Study
  Country: IN (occurrence: IN)
  Receive Date: 20250717
  Receipt Date: 20250818
  Transmission Date: 20251020
  Serious: Yes (Death, Hospitalization)
  Sender: ASTELLAS
  Company Number: IN-ASTELLAS-2025-AER-039235

PATIENT
  Age: 65 Year
  Sex: Female

DRUGS (2)
  1. ENFORTUMAB VEDOTIN-EJFV [Suspect]
     Active Substance: ENFORTUMAB VEDOTIN-EJFV
     Indication: Transitional cell carcinoma
     Dosage: 30 X 2 COUNTS
     Route: 042
     Dates: start: 20250708, end: 20250708
  2. KEYTRUDA [Concomitant]
     Active Substance: PEMBROLIZUMAB
     Indication: Product used for unknown indication
     Route: 065

REACTIONS (4)
  - Hepatic infection [Fatal]
  - Vomiting [Recovering/Resolving]
  - Jaundice [Recovering/Resolving]
  - Decreased appetite [Recovering/Resolving]

NARRATIVE: CASE EVENT DATE: 20250711
